FAERS Safety Report 5830569-1 (Version None)
Quarter: 2008Q3

REPORT INFORMATION
  Report Type: 
  Country: None (occurrence: None)
  Receive Date: 20080801
  Receipt Date: 20070723
  Transmission Date: 20090109
  Serious: No
  Sender: FDA-Public Use
  Company Number: US-BRISTOL-MYERS SQUIBB COMPANY-13854500

PATIENT
  Age: 45 Year
  Sex: Male

DRUGS (8)
  1. COUMADIN [Suspect]
     Indication: CORONARY ARTERY THROMBOSIS
     Dosage: 13-JUL-2007 COUMADIN 10 MG X5 DAYS AND 12.5 MG X2 DAYS.
     Route: 048
  2. METFORMIN HCL [Concomitant]
  3. ALTACE [Concomitant]
  4. NEXIUM [Concomitant]
  5. LIPITOR [Concomitant]
  6. LOPRESSOR [Concomitant]
  7. NEURONTIN [Concomitant]
  8. GLYBURIDE [Concomitant]

REACTIONS (1)
  - INTERNATIONAL NORMALISED RATIO ABNORMAL [None]
